FAERS Safety Report 6239986-1 (Version None)
Quarter: 2009Q2

REPORT INFORMATION
  Report Type: 
  Country: None (occurrence: None)
  Receive Date: 20090623
  Receipt Date: 20090619
  Transmission Date: 20091009
  Serious: Yes (Disabling)
  Sender: FDA-Public Use
  Company Number: DE-ASTRAZENECA-2009PK01450

PATIENT
  Age: 858 Month
  Sex: Female
  Weight: 65 kg

DRUGS (1)
  1. ARIMIDEX [Suspect]
     Indication: BREAST CANCER
     Route: 048
     Dates: start: 20080301

REACTIONS (2)
  - CATARACT [None]
  - RETINAL DEGENERATION [None]
